FAERS Safety Report 9265075 (Version 3)
Quarter: 2013Q2

REPORT INFORMATION
  Report Type: Spontaneous
  Country: JP (occurrence: JP)
  Receive Date: 20130501
  Receipt Date: 20130627
  Transmission Date: 20140414
  Serious: Yes (Hospitalization)
  Sender: FDA-Public Use
  Company Number: JP-ASTELLAS-2013JP005514

PATIENT
  Age: 77 Year
  Sex: Female
  Weight: 60 kg

DRUGS (10)
  1. VESICARE [Suspect]
     Indication: HYPERTONIC BLADDER
     Dosage: 5 MG, UID/QD
     Route: 048
     Dates: start: 20130318, end: 20130403
  2. NORVASC [Concomitant]
     Indication: HYPERTENSION
     Dosage: 5 MG, UID/QD
     Route: 048
     Dates: start: 20130215
  3. MAGLAX [Concomitant]
     Indication: CONSTIPATION
     Dosage: 330 MG, TID
     Route: 048
     Dates: start: 20130215
  4. LAC-B [Concomitant]
     Indication: CONSTIPATION
     Dosage: 1 DF, TID
     Route: 048
     Dates: start: 20130215
  5. GASMOTIN [Concomitant]
     Indication: ENTEROCOLITIS
     Dosage: 5 MG, TID
     Route: 048
     Dates: start: 20130215
  6. DAIKENCHUTO [Concomitant]
     Indication: POSTOPERATIVE CARE
     Dosage: 1 DF, TID
     Route: 048
     Dates: start: 20130215
  7. SENNOSIDE                          /00571901/ [Concomitant]
     Indication: CONSTIPATION
     Dosage: 24 MG, UID/QD
     Route: 048
     Dates: start: 20130215
  8. LENDORMIN [Concomitant]
     Indication: INSOMNIA
     Dosage: 0.25 MG, UID/QD
     Route: 048
     Dates: start: 20130215
  9. EBRANTIL                           /00631801/ [Concomitant]
     Indication: HYPERTONIC BLADDER
     Dosage: 30 MG, BID
     Route: 048
     Dates: start: 20130225, end: 20130318
  10. INSULIN [Concomitant]
     Indication: DIABETES MELLITUS
     Dosage: 4 IU, UID/QD
     Route: 058
     Dates: start: 20130312, end: 20130313

REACTIONS (1)
  - Megacolon [Recovered/Resolved]
